FAERS Safety Report 4293339-4 (Version None)
Quarter: 2004Q1

REPORT INFORMATION
  Report Type: 
  Country: None (occurrence: None)
  Receive Date: 20040209
  Receipt Date: 20030110
  Transmission Date: 20041129
  Serious: Yes (Other)
  Sender: FDA-Public Use
  Company Number: RPH 03/03

PATIENT
  Age: 56 Year
  Sex: Female

DRUGS (1)
  1. TC99 M MEDRONATE [Suspect]
     Indication: BONE PAIN
     Dosage: SINGLE, I.V. DOSE
     Route: 042
     Dates: start: 20020828

REACTIONS (1)
  - ULCER [None]
